FAERS Safety Report 10053447 (Version 3)
Quarter: 2014Q2

REPORT INFORMATION
  Report Type: Spontaneous
  Country: US (occurrence: US)
  Receive Date: 20140402
  Receipt Date: 20140422
  Transmission Date: 20141212
  Serious: Yes (Other)
  Sender: FDA-Public Use
  Company Number: US-TEVA-472859USA

PATIENT
  Age: 23 Year
  Sex: Female
  Weight: 88.08 kg

DRUGS (1)
  1. PARAGARD 380A [Suspect]
     Indication: CONTRACEPTION
     Route: 015
     Dates: start: 20130916, end: 201402

REACTIONS (4)
  - Abortion induced [Recovered/Resolved]
  - Drug ineffective [Recovered/Resolved]
  - Device expulsion [Recovered/Resolved]
  - Menstruation delayed [Not Recovered/Not Resolved]
